FAERS Safety Report 5196037-8 (Version None)
Quarter: 2006Q4

REPORT INFORMATION
  Report Type: 
  Country: None (occurrence: None)
  Receive Date: 20061227
  Receipt Date: 20061212
  Transmission Date: 20070319
  Serious: Yes (Other)
  Sender: FDA-Public Use
  Company Number: 2006AP001107

PATIENT
  Age: 68 Year
  Sex: Female

DRUGS (2)
  1. APO-ALLOPURINOL (ALLOPURINOL) [Suspect]
     Indication: GOUT
     Dosage: 200 MG; QD PO
     Route: 048
     Dates: start: 20060301, end: 20061207
  2. DILTIAZEM HYDROCHLORIDE [Concomitant]

REACTIONS (2)
  - DYSPHAGIA [None]
  - HAEMOPTYSIS [None]
